FAERS Safety Report 14058017 (Version 3)
Quarter: 2017Q4

REPORT INFORMATION
  Report Type: Spontaneous
  Country: NL (occurrence: NL)
  Receive Date: 20171006
  Receipt Date: 20171018
  Transmission Date: 20180321
  Serious: Yes (Congenital Anomaly, Other)
  Sender: FDA-Public Use
  Company Number: NL-ABBVIE-17P-114-2123808-00

PATIENT
  Sex: Female

DRUGS (1)
  1. DEPAKINE [Suspect]
     Active Substance: VALPROATE SODIUM
     Indication: MATERNAL EXPOSURE TIMING UNSPECIFIED
     Route: 064

REACTIONS (11)
  - Low set ears [Unknown]
  - Tachypnoea [Unknown]
  - Foetal exposure during pregnancy [Unknown]
  - Congenital nose malformation [Unknown]
  - Foetal anticonvulsant syndrome [Unknown]
  - Sensorimotor disorder [Unknown]
  - Developmental delay [Unknown]
  - Dysmorphism [Unknown]
  - Respiratory disorder [Unknown]
  - Congenital neurological disorder [Unknown]
  - Congenital oral malformation [Unknown]
